FAERS Safety Report 10386014 (Version 1)
Quarter: 2014Q1

REPORT INFORMATION
  Report Type: Spontaneous
  Country: US (occurrence: None)
  Receive Date: 20140306
  Receipt Date: 20140306
  Transmission Date: 20141002
  Serious: Yes (Hospitalization, Other)
  Sender: FDA-Public Use
  Company Number: 163-21880-13101700

PATIENT
  Age: 76 Year
  Sex: Female
  Weight: 80.74 kg

DRUGS (13)
  1. REVLIMIB (LENALIDOMIDE) (25 MILLIGRAM, CAPSULES) [Suspect]
     Indication: PLASMA CELL MYELOMA
     Dosage: 25MG, 21 IN 28 D, PO
     Route: 048
     Dates: start: 201207, end: 20120716
  2. AMLODIPINE BESYLATE (AMLODIPINE BESILATE) [Concomitant]
  3. COUMADIN (WARFARIN SODIUM) (TABLETS) [Concomitant]
  4. ZOMETA (ZOLEDRONIC ACID) [Concomitant]
  5. DEXAMETHASONE [Concomitant]
  6. CALCIUM WITH VITAMIN D [Concomitant]
  7. RED BLOOD CELLS (INJECTION FOR INFUSION) [Concomitant]
  8. ALLOPURINOL (TABLETS) [Concomitant]
  9. CENTRUM ULTRA WOMENS (CENTRUM) [Concomitant]
  10. GABAPENTIN (600 MILLIGRAM, TABLETS) [Concomitant]
  11. METOPROLOL SUCCINATE (SUSTAINED-RELEASE TABLET) [Concomitant]
  12. NEXIUM (ESOMEPRAZOLE) [Concomitant]
  13. DILAUDID (HYDROMORPHONE HYDROCHLORIDE) [Concomitant]

REACTIONS (3)
  - Femur fracture [None]
  - Fall [None]
  - Plasma cell myeloma [None]
